FAERS Safety Report 21255881 (Version 2)
Quarter: 2023Q1

REPORT INFORMATION
  Report Type: 
  Country: CO (occurrence: CO)
  Receive Date: 20220825
  Receipt Date: 20230106
  Transmission Date: 20230418
  Serious: Yes (Hospitalization)
  Sender: FDA-Public Use
  Company Number: CO-Teikoku Pharma USA-TPU2022-00762

PATIENT
  Age: 59 Year
  Sex: Female
  Weight: 144 kg

DRUGS (1)
  1. LIDOCAINE [Suspect]
     Active Substance: LIDOCAINE
     Route: 061
     Dates: start: 20220624

REACTIONS (1)
  - Bacterial test positive [Unknown]

NARRATIVE: CASE EVENT DATE: 20220628
